FAERS Safety Report 9709380 (Version 2)
Quarter: 2014Q1

REPORT INFORMATION
  Report Type: Spontaneous
  Country: US (occurrence: US)
  Receive Date: 20131126
  Receipt Date: 20140110
  Transmission Date: 20141002
  Serious: No
  Sender: FDA-Public Use
  Company Number: US-009507513-1311USA007546

PATIENT
  Age: 35 Year
  Sex: Male

DRUGS (4)
  1. VICTRELIS [Suspect]
     Indication: HEPATITIS C
     Dosage: 4 CAPSULES THREE TIMES DAILY WITH MEALS
     Route: 048
     Dates: start: 201310
  2. REBETOL [Suspect]
     Route: 048
  3. PEGASYS [Suspect]
  4. AMLODIPINE [Concomitant]

REACTIONS (4)
  - Ear infection [Not Recovered/Not Resolved]
  - Chills [Unknown]
  - Fatigue [Not Recovered/Not Resolved]
  - Drug ineffective [Not Recovered/Not Resolved]
